FAERS Safety Report 20246559 (Version 1)
Quarter: 2021Q4

REPORT INFORMATION
  Report Type: Report from Study
  Country: US (occurrence: US)
  Receive Date: 20211229
  Receipt Date: 20211229
  Transmission Date: 20220304
  Serious: Yes (Death)
  Sender: FDA-Public Use
  Company Number: US-TEVA-2021-US-1994383

PATIENT
  Age: 18 Month
  Sex: Female

DRUGS (4)
  1. ALPRAZOLAM [Suspect]
     Active Substance: ALPRAZOLAM
     Route: 048
  2. ACETAMINOPHEN [Suspect]
     Active Substance: ACETAMINOPHEN
     Route: 048
  3. HYDROCODONE [Suspect]
     Active Substance: HYDROCODONE
     Route: 048
  4. DIHYDROCODEINE [Suspect]
     Active Substance: DIHYDROCODEINE
     Route: 048

REACTIONS (1)
  - Accidental exposure to product [Fatal]
